FAERS Safety Report 14236212 (Version 1)
Quarter: 2017Q4

REPORT INFORMATION
  Report Type: Spontaneous
  Country: GB (occurrence: GB)
  Receive Date: 20171129
  Receipt Date: 20171129
  Transmission Date: 20180321
  Serious: Yes (Other)
  Sender: FDA-Public Use
  Company Number: GB-LEO PHARMA-305825

PATIENT
  Age: 66 Year
  Sex: Male

DRUGS (4)
  1. DERMOL [Concomitant]
     Active Substance: BENZALKONIUM CHLORIDE\CHLORHEXIDINE HYDROCHLORIDE\ISOPROPYL MYRISTATE\PARAFFIN
     Indication: ECZEMA
     Dosage: SOAP SUBSTITUTE
  2. CETIRIZINE [Concomitant]
     Active Substance: CETIRIZINE HYDROCHLORIDE
     Indication: ECZEMA
  3. NIZORAL [Concomitant]
     Active Substance: KETOCONAZOLE
     Indication: ECZEMA
  4. DAIVOBET [Suspect]
     Active Substance: BETAMETHASONE DIPROPIONATE\CALCIPOTRIENE
     Indication: PSORIASIS
     Dates: start: 20171005, end: 20171005

REACTIONS (1)
  - Intraocular pressure test abnormal [Recovering/Resolving]

NARRATIVE: CASE EVENT DATE: 20171005
